FAERS Safety Report 7596720-0 (Version None)
Quarter: 2011Q3

REPORT INFORMATION
  Report Type: 
  Country: None (occurrence: None)
  Receive Date: 20110708
  Receipt Date: 20110630
  Transmission Date: 20111222
  Serious: No
  Sender: FDA-Public Use
  Company Number: US-PFIZER INC-2011147902

PATIENT
  Sex: Female

DRUGS (1)
  1. PRISTIQ [Suspect]
     Dosage: UNK

REACTIONS (10)
  - HYPERHIDROSIS [None]
  - INSOMNIA [None]
  - HOT FLUSH [None]
  - CHILLS [None]
  - PANIC DISORDER [None]
  - DIZZINESS [None]
  - DRUG WITHDRAWAL SYNDROME [None]
  - DYSPEPSIA [None]
  - CLAUSTROPHOBIA [None]
  - NAUSEA [None]
